FAERS Safety Report 8995162 (Version 1)
Quarter: 2013Q1

REPORT INFORMATION
  Report Type: Spontaneous
  Country: FR (occurrence: FR)
  Receive Date: 20130102
  Receipt Date: 20130102
  Transmission Date: 20140127
  Serious: Yes (Hospitalization)
  Sender: FDA-Public Use
  Company Number: FR-B.I. PHARMACEUTICALS,INC./RIDGEFIELD-2012-FF-01746FF

PATIENT
  Age: 83 Year
  Sex: Male

DRUGS (4)
  1. PRADAXA [Suspect]
     Indication: ATRIAL FIBRILLATION
     Dosage: 220 MG
     Route: 048
     Dates: start: 201206, end: 201211
  2. FUROSEMIDE [Concomitant]
  3. CRESTOR [Concomitant]
  4. PERINDOPRIL [Concomitant]

REACTIONS (2)
  - Small intestinal haemorrhage [Recovered/Resolved]
  - Condition aggravated [Recovered/Resolved]
